FAERS Safety Report 9468506 (Version 1)
Quarter: 2013Q3

REPORT INFORMATION
  Report Type: Spontaneous
  Country: US (occurrence: US)
  Receive Date: 20130821
  Receipt Date: 20130821
  Transmission Date: 20140515
  Serious: No
  Sender: FDA-Public Use
  Company Number: US-009507513-1308USA006759

PATIENT
  Age: 67 Year
  Sex: Female

DRUGS (7)
  1. DULERA [Suspect]
     Indication: ASTHMA
     Dosage: 200/5 MCG; ONCE IN THE MORNING AND ONCE IN THE EVENING
     Route: 055
     Dates: start: 20130723
  2. METFORMIN [Concomitant]
  3. CARVEDILOL [Concomitant]
  4. METOPROLOL [Concomitant]
  5. BENAZEPRIL HYDROCHLORIDE [Concomitant]
  6. TRAMADOL HYDROCHLORIDE [Concomitant]
  7. ZOCOR [Concomitant]
     Route: 048

REACTIONS (2)
  - Dysphonia [Not Recovered/Not Resolved]
  - Speech disorder [Not Recovered/Not Resolved]
